FAERS Safety Report 8975042 (Version 1)
Quarter: 2012Q4

REPORT INFORMATION
  Report Type: Report from Study
  Country: US (occurrence: US)
  Receive Date: 20121219
  Receipt Date: 20121219
  Transmission Date: 20130627
  Serious: Yes (Hospitalization)
  Sender: FDA-Public Use
  Company Number: US-CELGENEUS-163-21880-12121118

PATIENT
  Age: 71 Year
  Sex: Male
  Weight: 85.9 kg

DRUGS (11)
  1. REVLIMID [Suspect]
     Indication: MYELODYSPLASTIC SYNDROME
     Route: 048
     Dates: start: 200607, end: 200609
  2. ERLOTINIB [Suspect]
     Indication: MYELODYSPLASTIC SYNDROME
     Dosage: 150 Milligram
     Route: 048
     Dates: start: 20091130
  3. HUMULIN [Concomitant]
     Indication: DRUG USE FOR UNKNOWN INDICATION
     Dosage: 70/30
     Route: 065
  4. TARKA [Concomitant]
     Indication: DRUG USE FOR UNKNOWN INDICATION
     Route: 065
  5. VYTORIN [Concomitant]
     Indication: DRUG USE FOR UNKNOWN INDICATION
     Route: 065
  6. COMPAZINE [Concomitant]
     Indication: DRUG USE FOR UNKNOWN INDICATION
     Route: 065
  7. AMARYL [Concomitant]
     Indication: DRUG USE FOR UNKNOWN INDICATION
     Route: 065
  8. TOPROL [Concomitant]
     Indication: DRUG USE FOR UNKNOWN INDICATION
     Route: 065
  9. INSULIN REGULAR [Concomitant]
     Indication: DRUG USE FOR UNKNOWN INDICATION
     Route: 065
  10. GLUCOPHAGE [Concomitant]
     Indication: DRUG USE FOR UNKNOWN INDICATION
     Route: 065
  11. VIDAZA [Concomitant]
     Indication: DRUG USE FOR UNKNOWN INDICATION
     Route: 065
     Dates: start: 200804

REACTIONS (2)
  - Arterial thrombosis [Recovered/Resolved]
  - Catheter site infection [Recovered/Resolved]
